FAERS Safety Report 21528633 (Version 15)
Quarter: 2023Q2

REPORT INFORMATION
  Report Type: Report from Study
  Country: JP (occurrence: None)
  Receive Date: 20221031
  Receipt Date: 20230630
  Transmission Date: 20230722
  Serious: Yes (Hospitalization)
  Sender: FDA-Public Use
  Company Number: JP-Eisai Medical Research-EC-2022-126845

PATIENT
  Age: 59 Year
  Sex: Male
  Weight: 56.7 kg

DRUGS (22)
  1. LENVATINIB [Suspect]
     Active Substance: LENVATINIB
     Indication: Clear cell renal cell carcinoma
     Dosage: STARTING DOSE: 20 MG, FLUCTUATED DOSAGE
     Route: 048
     Dates: start: 20220222, end: 20221024
  2. LENVATINIB [Suspect]
     Active Substance: LENVATINIB
     Route: 048
     Dates: start: 20221220
  3. PEMBROLIZUMAB [Suspect]
     Active Substance: PEMBROLIZUMAB
     Indication: Clear cell renal cell carcinoma
     Route: 042
     Dates: start: 20220809, end: 20220920
  4. QUAVONLIMAB [Suspect]
     Active Substance: QUAVONLIMAB
     Indication: Clear cell renal cell carcinoma
     Dosage: QUAVONLIMAB (MK-1308) 25MG + PEMBROLIZUMAB (MK-3475) 400MG
     Route: 042
     Dates: start: 20220222, end: 20220628
  5. SENNOSIDES A AND B [Concomitant]
     Active Substance: SENNOSIDES A AND B
     Dates: start: 202111
  6. ALOSENN [SENNOSIDE A+B] [Concomitant]
     Dates: start: 202111
  7. HEPARINOID [Concomitant]
     Dates: start: 20220222, end: 20221024
  8. KERATINAMIN [UREA] [Concomitant]
     Dates: start: 20220222, end: 20221024
  9. AZULENE [SODIUM GUALENATE HYDRATE] [Concomitant]
     Route: 061
     Dates: start: 20220222
  10. GUAIAZULENE [Concomitant]
     Active Substance: GUAIAZULENE
     Dates: start: 20220315, end: 20221011
  11. LULICONAZOLE [Concomitant]
     Active Substance: LULICONAZOLE
     Dates: start: 20220322
  12. LOCOID [Concomitant]
     Active Substance: HYDROCORTISONE BUTYRATE
     Dates: start: 20220426, end: 20221125
  13. LOXOPROFEN [Concomitant]
     Active Substance: LOXOPROFEN
     Dates: start: 20220607, end: 20230131
  14. KETOPROFEN [Concomitant]
     Active Substance: KETOPROFEN
     Dates: start: 20220607, end: 20230131
  15. CALONAL [Concomitant]
     Active Substance: ACETAMINOPHEN
     Dates: start: 20220607, end: 20230131
  16. NEXIUM [Concomitant]
     Active Substance: ESOMEPRAZOLE MAGNESIUM
     Dates: start: 20220628
  17. MIYA-BM [Concomitant]
     Active Substance: CLOSTRIDIUM BUTYRICUM SPORES STRAIN M-55
     Dates: start: 20220816
  18. CLARITHROMYCIN [Concomitant]
     Active Substance: CLARITHROMYCIN
     Dates: start: 20221011, end: 20221017
  19. PASETOCIN [AMOXICILLIN] [Concomitant]
     Dates: start: 20221011, end: 20221017
  20. VONOPRAZAN FUMARATE [Concomitant]
     Active Substance: VONOPRAZAN FUMARATE
     Dates: start: 20221011, end: 20221017
  21. ESZOPICLONE [Concomitant]
     Active Substance: ESZOPICLONE
     Dates: start: 20221025, end: 20221117
  22. PEMBROLIZUMAB [Suspect]
     Active Substance: PEMBROLIZUMAB

REACTIONS (1)
  - Rash [Recovered/Resolved]

NARRATIVE: CASE EVENT DATE: 20221021
